FAERS Safety Report 4769132-2 (Version None)
Quarter: 2005Q3

REPORT INFORMATION
  Report Type: 
  Country: None (occurrence: None)
  Receive Date: 20050913
  Receipt Date: 20050831
  Transmission Date: 20060218
  Serious: Yes (Other)
  Sender: FDA-Public Use
  Company Number: 2005117863

PATIENT
  Age: 69 Year
  Sex: Male

DRUGS (1)
  1. VFEND [Suspect]
     Indication: CANDIDIASIS
     Dosage: ORAL
     Route: 048
     Dates: start: 20050705

REACTIONS (1)
  - NO ADVERSE EFFECT [None]
